FAERS Safety Report 14838913 (Version 1)
Quarter: 2018Q2

REPORT INFORMATION
  Report Type: Spontaneous
  Country: US (occurrence: US)
  Receive Date: 20180502
  Receipt Date: 20180502
  Transmission Date: 20180711
  Serious: No
  Sender: FDA-Public Use
  Company Number: US-GLAXOSMITHKLINE-US2018GSK075378

PATIENT

DRUGS (1)
  1. BENLYSTA [Suspect]
     Active Substance: BELIMUMAB
     Indication: PRODUCT USED FOR UNKNOWN INDICATION

REACTIONS (10)
  - Nervousness [Unknown]
  - Chills [Unknown]
  - Hot flush [Unknown]
  - Cold sweat [Unknown]
  - Palpitations [Unknown]
  - Fear [Unknown]
  - Ill-defined disorder [Unknown]
  - Dyspnoea [Unknown]
  - Thirst [Unknown]
  - Head discomfort [Unknown]
